FAERS Safety Report 17629077 (Version 1)
Quarter: 2020Q2

REPORT INFORMATION
  Report Type: Spontaneous
  Country: US (occurrence: US)
  Receive Date: 20200406
  Receipt Date: 20200406
  Transmission Date: 20200713
  Serious: No
  Sender: FDA-Public Use
  Company Number: US-ALLERGAN-1934360US

PATIENT
  Age: 76 Year
  Sex: Male

DRUGS (3)
  1. MESALAZINE - BP [Suspect]
     Active Substance: MESALAMINE
     Dosage: 1 DF, BID
     Route: 048
     Dates: start: 201905
  2. MESALAZINE - BP [Suspect]
     Active Substance: MESALAMINE
     Dosage: 1 DF, TID
     Route: 048
     Dates: start: 201805, end: 2018
  3. MESALAZINE - BP [Suspect]
     Active Substance: MESALAMINE
     Indication: COLITIS ULCERATIVE
     Dosage: 1 DF, QD
     Route: 048
     Dates: start: 201907

REACTIONS (11)
  - Dehydration [Unknown]
  - Muscle spasms [Not Recovered/Not Resolved]
  - Pyrexia [Recovered/Resolved]
  - Constipation [Unknown]
  - Abdominal pain lower [Not Recovered/Not Resolved]
  - Blood pressure decreased [Recovered/Resolved]
  - Flatulence [Unknown]
  - Hyperhidrosis [Unknown]
  - Asthenia [Recovered/Resolved]
  - Syncope [Recovered/Resolved]
  - Fatigue [Recovered/Resolved]

NARRATIVE: CASE EVENT DATE: 2019
